FAERS Safety Report 14258818 (Version 2)
Quarter: 2017Q4

REPORT INFORMATION
  Report Type: Report from Study
  Country: US (occurrence: US)
  Receive Date: 20171207
  Receipt Date: 20171222
  Transmission Date: 20180321
  Serious: Yes (Death, Other)
  Sender: FDA-Public Use
  Company Number: US-ASTELLAS-2017US038216

PATIENT
  Sex: Male

DRUGS (1)
  1. ENZALUTAMIDE [Suspect]
     Active Substance: ENZALUTAMIDE
     Indication: HORMONE-REFRACTORY PROSTATE CANCER
     Route: 048
     Dates: start: 20170724

REACTIONS (8)
  - Malignant neoplasm progression [Fatal]
  - Dyspnoea [Unknown]
  - Headache [Unknown]
  - Insomnia [Unknown]
  - Constipation [Unknown]
  - Back pain [Unknown]
  - Diarrhoea [Unknown]
  - Arthralgia [Unknown]
